FAERS Safety Report 6605033-2 (Version None)
Quarter: 2010Q1

REPORT INFORMATION
  Report Type: 
  Country: None (occurrence: None)
  Receive Date: 20100218
  Receipt Date: 20100204
  Transmission Date: 20100710
  Serious: Yes (Hospitalization)
  Sender: FDA-Public Use
  Company Number: DSJ-2010-02020

PATIENT
  Age: 51 Year
  Sex: Female

DRUGS (5)
  1. BENICAR [Suspect]
     Indication: HYPERTENSION
     Dosage: 40 MG (1 IN 1 D), PER ORAL
     Route: 048
     Dates: start: 20050101, end: 20091201
  2. BISOPROLOL FUMARATE (BISOPROLOL FUMARATE) (BISOPROLOL FUMARATE) [Concomitant]
  3. INDAPAMIDE (INDAPAMIDE) (INDAPAMIDE) [Concomitant]
  4. CLONIDINE [Concomitant]
  5. AMLODIPINE [Concomitant]

REACTIONS (2)
  - ATRIOVENTRICULAR BLOCK [None]
  - SYNCOPE [None]
